FAERS Safety Report 8060180-6 (Version None)
Quarter: 2012Q1

REPORT INFORMATION
  Report Type: 
  Country: None (occurrence: None)
  Receive Date: 20120120
  Receipt Date: 20120109
  Transmission Date: 20120608
  Serious: Yes (Death, Other)
  Sender: FDA-Public Use
  Company Number: IT-ROCHE-1030448

PATIENT
  Age: 76 Year
  Sex: Female

DRUGS (1)
  1. ALTEPLASE [Suspect]
     Indication: ISCHAEMIC STROKE
     Route: 040

REACTIONS (4)
  - BRAIN OEDEMA [None]
  - BRAIN MIDLINE SHIFT [None]
  - NEUROLOGICAL DECOMPENSATION [None]
  - ISCHAEMIC STROKE [None]
